FAERS Safety Report 7969502-5 (Version None)
Quarter: 2011Q4

REPORT INFORMATION
  Report Type: 
  Country: None (occurrence: None)
  Receive Date: 20111212
  Receipt Date: 20111202
  Transmission Date: 20120403
  Serious: No
  Sender: FDA-Public Use
  Company Number: US-BIOGENIDEC-2011BI045915

PATIENT
  Sex: Female

DRUGS (2)
  1. AVONEX [Suspect]
     Indication: MULTIPLE SCLEROSIS
     Route: 030
     Dates: start: 20090728
  2. AVONEX [Suspect]
     Route: 030
     Dates: start: 20031119, end: 20070401

REACTIONS (4)
  - ANTINUCLEAR ANTIBODY INCREASED [None]
  - ANKLE OPERATION [None]
  - MUSCULAR WEAKNESS [None]
  - PERONEAL NERVE PALSY [None]
